FAERS Safety Report 21831121 (Version 2)
Quarter: 2023Q1

REPORT INFORMATION
  Report Type: Spontaneous
  Country: IN (occurrence: IN)
  Receive Date: 20230106
  Receipt Date: 20230119
  Transmission Date: 20230417
  Serious: Yes (Other)
  Sender: FDA-Public Use
  Company Number: IN-BAXTER-2023BAX009948

PATIENT
  Age: 35 Year
  Sex: Female

DRUGS (5)
  1. BUPIVACAINE [Suspect]
     Active Substance: BUPIVACAINE
     Indication: Spinal anaesthesia
     Dosage: 2.2 ML 1 TOTAL, HEAVY
     Route: 037
  2. CEFOTAXIME [Suspect]
     Active Substance: CEFOTAXIME SODIUM
     Indication: Antibiotic prophylaxis
     Dosage: 1 G
     Route: 042
  3. OXYGEN [Suspect]
     Active Substance: OXYGEN
     Dosage: MASK
  4. THIOPENTAL SODIUM [Suspect]
     Active Substance: THIOPENTAL SODIUM
     Dosage: 250 MG
     Route: 042
  5. ATRACURIUM [Suspect]
     Active Substance: ATRACURIUM
     Indication: Muscle relaxant therapy
     Dosage: INJ 30 MG IV
     Route: 042

REACTIONS (8)
  - Status epilepticus [Unknown]
  - Generalised tonic-clonic seizure [Unknown]
  - Myoclonic epilepsy [Unknown]
  - Exposure during pregnancy [Unknown]
  - Drug hypersensitivity [Unknown]
  - Pruritus [Unknown]
  - Flushing [Unknown]
  - Restlessness [Unknown]
